FAERS Safety Report 21131745 (Version 2)
Quarter: 2022Q3

REPORT INFORMATION
  Report Type: Spontaneous
  Country: US (occurrence: US)
  Receive Date: 20220726
  Receipt Date: 20220811
  Transmission Date: 20221027
  Serious: Yes (Other)
  Sender: FDA-Public Use
  Company Number: US-BRISTOL-MYERS SQUIBB COMPANY-2022-075878

PATIENT
  Age: 72 Year
  Sex: Female

DRUGS (2)
  1. REVLIMID [Suspect]
     Active Substance: LENALIDOMIDE
     Indication: Plasma cell myeloma
     Dosage: DAILY
     Route: 048
  2. REVLIMID [Suspect]
     Active Substance: LENALIDOMIDE
     Dosage: DAILY
     Route: 048

REACTIONS (8)
  - Paraesthesia [Unknown]
  - Peripheral swelling [Unknown]
  - Urticaria [Unknown]
  - Thrombosis [Unknown]
  - Peripheral swelling [Unknown]
  - Joint swelling [Unknown]
  - Swelling face [Unknown]
  - Eye swelling [Unknown]

NARRATIVE: CASE EVENT DATE: 20220316
